FAERS Safety Report 7561721-5 (Version None)
Quarter: 2011Q2

REPORT INFORMATION
  Report Type: 
  Country: None (occurrence: None)
  Receive Date: 20110621
  Receipt Date: 20101223
  Transmission Date: 20111010
  Serious: No
  Sender: FDA-Public Use
  Company Number: US-ASTRAZENECA-2010SE60823

PATIENT
  Sex: Female

DRUGS (5)
  1. RHINOCORT [Suspect]
     Indication: HYPERSENSITIVITY
     Route: 045
     Dates: start: 20101101
  2. PRAVASTATIN [Concomitant]
  3. RHINOCORT [Suspect]
     Indication: RHINITIS
     Route: 045
     Dates: start: 20101101
  4. AMLODIPINE BESYLATE AND BENAZEPRIL HCL [Concomitant]
     Indication: HYPERTENSION
  5. PULMICORT FLEXHALER [Suspect]
     Route: 055

REACTIONS (2)
  - OROPHARYNGEAL PAIN [None]
  - DRUG DOSE OMISSION [None]
